FAERS Safety Report 13599358 (Version 1)
Quarter: 2017Q2

REPORT INFORMATION
  Report Type: Spontaneous
  Country: FR (occurrence: FR)
  Receive Date: 20170531
  Receipt Date: 20170531
  Transmission Date: 20170830
  Serious: Yes (Hospitalization, Other)
  Sender: FDA-Public Use
  Company Number: FR-ALLERGAN-1722216US

PATIENT
  Age: 33 Year
  Sex: Female

DRUGS (5)
  1. GONAL-F [Suspect]
     Active Substance: FOLLITROPIN
     Indication: OOCYTE DONATION
     Dosage: 200 IU, QD
     Route: 058
     Dates: start: 20170324, end: 20170329
  2. TRIPTORELIN PAMOATE - BP [Suspect]
     Active Substance: TRIPTORELIN PAMOATE
     Indication: OVULATION INDUCTION
     Dosage: 2 DF, SINGLE
     Route: 058
     Dates: start: 20170402, end: 20170402
  3. GONAL-F [Suspect]
     Active Substance: FOLLITROPIN
     Dosage: 375 IU, QD
     Route: 058
     Dates: start: 20170330, end: 20170401
  4. TRIPTORELIN PAMOATE - BP [Suspect]
     Active Substance: TRIPTORELIN PAMOATE
     Indication: OOCYTE DONATION
  5. ORGALUTRAN [Suspect]
     Active Substance: GANIRELIX ACETATE
     Indication: OOCYTE DONATION
     Dosage: 1 DF, QD
     Route: 058
     Dates: start: 20170330, end: 20170402

REACTIONS (6)
  - Peritoneal haemorrhage [Recovered/Resolved]
  - Incorrect dose administered [Unknown]
  - Anaemia [Unknown]
  - Ovarian hyperstimulation syndrome [Unknown]
  - Thrombosis [Unknown]
  - Off label use [Unknown]

NARRATIVE: CASE EVENT DATE: 20170404
